FAERS Safety Report 9571302 (Version 1)
Quarter: 2013Q3

REPORT INFORMATION
  Report Type: Spontaneous
  Country: US (occurrence: None)
  Receive Date: 20130927
  Receipt Date: 20130927
  Transmission Date: 20140515
  Serious: Yes (Hospitalization)
  Sender: FDA-Public Use
  Company Number: KAD201309-001208

PATIENT
  Age: 56 Year
  Sex: Female

DRUGS (5)
  1. RIBAVIRIN [Suspect]
     Indication: CHRONIC HEPATITIS C
  2. PEGINTERFERON ALFA-2A [Suspect]
     Indication: CHRONIC HEPATITIS C
  3. TELAPREVIR [Suspect]
     Indication: CHRONIC HEPATITIS C
  4. CLOBETASOL [Suspect]
     Indication: RASH
     Route: 061
  5. TRIAMCINOLONE ACE INJ [Suspect]

REACTIONS (15)
  - Adrenocortical insufficiency acute [None]
  - Drug interaction [None]
  - Iatrogenic injury [None]
  - Rash pruritic [None]
  - Rash macular [None]
  - Drug eruption [None]
  - Fatigue [None]
  - Malaise [None]
  - Blood sodium decreased [None]
  - Inappropriate antidiuretic hormone secretion [None]
  - Lethargy [None]
  - Asthenia [None]
  - Diarrhoea [None]
  - Nausea [None]
  - Decreased appetite [None]
